FAERS Safety Report 8114073-6 (Version None)
Quarter: 2012Q1

REPORT INFORMATION
  Report Type: 
  Country: None (occurrence: None)
  Receive Date: 20120203
  Receipt Date: 20120130
  Transmission Date: 20120608
  Serious: Yes (Death)
  Sender: FDA-Public Use
  Company Number: SI-ASTRAZENECA-2012SE05223

PATIENT
  Age: 77 Year
  Sex: Female

DRUGS (8)
  1. DIPRIVAN [Suspect]
     Indication: BIOPSY LYMPH GLAND
     Route: 042
  2. SIMVASTATIN [Concomitant]
     Indication: HYPERTENSION
  3. ASPIRIN [Concomitant]
  4. PENTOXYPHILLINE [Concomitant]
  5. BIGUANIDE [Concomitant]
  6. COMBINED MEDICINAL PRODUCT [Concomitant]
     Indication: OSTEOPOROSIS
  7. LEPTOSUKCIN [Suspect]
     Indication: MUSCLE RELAXANT THERAPY
     Route: 042
  8. NIFEDIPINE [Concomitant]
     Indication: HYPERTENSION

REACTIONS (1)
  - ANAPHYLACTIC REACTION [None]
